FAERS Safety Report 9792681 (Version 1)
Quarter: 2014Q1

REPORT INFORMATION
  Report Type: Spontaneous
  Country: US (occurrence: US)
  Receive Date: 20140102
  Receipt Date: 20140102
  Transmission Date: 20141002
  Serious: No
  Sender: FDA-Public Use
  Company Number: US-SA-2013SA109464

PATIENT
  Sex: 0

DRUGS (3)
  1. AUBAGIO [Suspect]
     Route: 048
  2. AMLODIPINE [Concomitant]
     Dosage: DOSE: 1/2 OF 2.5 PILL DAILY
     Route: 065
  3. ALL OTHER THERAPEUTIC PRODUCTS [Concomitant]

REACTIONS (4)
  - Blood pressure abnormal [Unknown]
  - Decreased appetite [Unknown]
  - Feeling abnormal [Unknown]
  - Nausea [Unknown]
